FAERS Safety Report 7653816-2 (Version None)
Quarter: 2011Q3

REPORT INFORMATION
  Report Type: 
  Country: None (occurrence: None)
  Receive Date: 20110801
  Receipt Date: 20110801
  Transmission Date: 20111222
  Serious: No
  Sender: FDA-Public Use
  Company Number: None

PATIENT
  Sex: Female
  Weight: 78.3 kg

DRUGS (1)
  1. VENOFER [Suspect]
     Indication: IRON DEFICIENCY ANAEMIA
     Dosage: 200MG IN 120ML X 1 IVPB OVER 30 MINUTES
     Route: 040
     Dates: start: 20110728

REACTIONS (4)
  - INJECTION SITE RASH [None]
  - INJECTION SITE PAIN [None]
  - SWELLING [None]
  - INJECTION SITE HAEMATOMA [None]
